FAERS Safety Report 15806890 (Version 3)
Quarter: 2019Q1

REPORT INFORMATION
  Report Type: Spontaneous
  Country: US (occurrence: US)
  Receive Date: 20190110
  Receipt Date: 20190305
  Transmission Date: 20190417
  Serious: Yes (Other)
  Sender: FDA-Public Use
  Company Number: US-GLAXOSMITHKLINE-US2018GSK230840

PATIENT
  Sex: Male

DRUGS (1)
  1. FLOVENT DISKUS [Suspect]
     Active Substance: FLUTICASONE PROPIONATE
     Indication: PRODUCT USED FOR UNKNOWN INDICATION
     Dosage: UNK

REACTIONS (7)
  - Cardiac flutter [Unknown]
  - Dysphonia [Unknown]
  - Speech disorder [Unknown]
  - Spirometry abnormal [Unknown]
  - Dizziness [Unknown]
  - Decreased appetite [Unknown]
  - Dry mouth [Unknown]
